FAERS Safety Report 23148918 (Version 4)
Quarter: 2024Q1

REPORT INFORMATION
  Report Type: Report from Study
  Country: US (occurrence: US)
  Receive Date: 20231106
  Receipt Date: 20240328
  Transmission Date: 20240410
  Serious: Yes (Other)
  Sender: FDA-Public Use
  Company Number: US-OTSUKA-2023_027573

PATIENT
  Age: 33 Year
  Sex: Male
  Weight: 78.7 kg

DRUGS (9)
  1. TOLVAPTAN [Suspect]
     Active Substance: TOLVAPTAN
     Indication: Congenital cystic kidney disease
     Dosage: 45 MG, QD (UPON WAKING)
     Route: 048
     Dates: start: 20230824
  2. TOLVAPTAN [Suspect]
     Active Substance: TOLVAPTAN
     Dosage: 15 MG, QD (8 HOURS LATER)
     Route: 048
     Dates: start: 20230824
  3. TOLVAPTAN [Suspect]
     Active Substance: TOLVAPTAN
     Dosage: 45 MG, QD (EARLY MORNING)
     Route: 065
     Dates: start: 202309
  4. TOLVAPTAN [Suspect]
     Active Substance: TOLVAPTAN
     Dosage: 15 MG, QD (8 H LATER)
     Route: 065
     Dates: start: 202309
  5. TOLVAPTAN [Suspect]
     Active Substance: TOLVAPTAN
     Dosage: UNK (RESTARTED)
     Route: 065
     Dates: start: 202311
  6. LISINOPRIL [Concomitant]
     Active Substance: LISINOPRIL
     Indication: Blood pressure management
     Dosage: 2.5 MG, QD
     Route: 048
     Dates: start: 20230413
  7. LISINOPRIL [Concomitant]
     Active Substance: LISINOPRIL
     Indication: Cyst
     Dosage: 7.5 MG, QD (1.5 TABLETS OF 5 MG )
     Route: 048
     Dates: start: 20230907
  8. ERGOCALCIFEROL [Concomitant]
     Active Substance: ERGOCALCIFEROL
     Indication: Product used for unknown indication
     Dosage: 50000 IU, QW
     Route: 048
     Dates: start: 20230722
  9. TUMS [Concomitant]
     Active Substance: CALCIUM CARBONATE
     Indication: Product used for unknown indication
     Dosage: UNK
     Route: 065

REACTIONS (11)
  - Tubulointerstitial nephritis [Unknown]
  - Blood phosphorus abnormal [Recovered/Resolved]
  - Blood 25-hydroxycholecalciferol decreased [Unknown]
  - Albumin globulin ratio increased [Unknown]
  - Urine albumin/creatinine ratio increased [Unknown]
  - Micturition disorder [Not Recovered/Not Resolved]
  - Blood urea increased [Recovered/Resolved]
  - Blood creatinine increased [Recovered/Resolved]
  - Glomerular filtration rate decreased [Recovered/Resolved]
  - Thirst [Not Recovered/Not Resolved]
  - Product dose omission issue [Not Recovered/Not Resolved]

NARRATIVE: CASE EVENT DATE: 20230920
